FAERS Safety Report 10413415 (Version 1)
Quarter: 2014Q3

REPORT INFORMATION
  Report Type: Spontaneous
  Country: JP (occurrence: JP)
  Receive Date: 20140827
  Receipt Date: 20140827
  Transmission Date: 20150326
  Serious: Yes (Hospitalization)
  Sender: FDA-Public Use
  Company Number: JP-GLAXOSMITHKLINE-B1017881A

PATIENT
  Age: 78 Year
  Sex: Female

DRUGS (6)
  1. AZULFIDINE EN-TABS [Concomitant]
     Active Substance: SULFASALAZINE
     Dosage: 500MG TWICE PER DAY
     Route: 048
  2. METHYCOBAL [Concomitant]
     Active Substance: METHYLCOBALAMIN
     Indication: HERPES SIMPLEX OTITIS EXTERNA
     Dosage: 500MCG THREE TIMES PER DAY
     Route: 048
     Dates: start: 20140716, end: 20140719
  3. ARTIST [Concomitant]
     Active Substance: CARVEDILOL
     Dosage: 2.5MG PER DAY
     Route: 048
  4. PARIET [Concomitant]
     Active Substance: RABEPRAZOLE SODIUM
     Dosage: 10MG PER DAY
     Route: 048
  5. VALTREX [Suspect]
     Active Substance: VALACYCLOVIR HYDROCHLORIDE
     Indication: HERPES SIMPLEX OTITIS EXTERNA
     Dosage: 500MG PER DAY
     Route: 048
     Dates: start: 20140716, end: 20140718
  6. TEGRETOL [Concomitant]
     Active Substance: CARBAMAZEPINE
     Indication: HERPES SIMPLEX OTITIS EXTERNA
     Dosage: 200MG THREE TIMES PER DAY
     Route: 048
     Dates: start: 20140716, end: 20140719

REACTIONS (4)
  - Gait disturbance [Recovering/Resolving]
  - Dysarthria [Recovering/Resolving]
  - Toxic encephalopathy [Recovering/Resolving]
  - Malaise [Recovering/Resolving]

NARRATIVE: CASE EVENT DATE: 20140716
